FAERS Safety Report 9258055 (Version 1)
Quarter: 2013Q1

REPORT INFORMATION
  Report Type: Spontaneous
  Country: US (occurrence: None)
  Receive Date: 20121212
  Receipt Date: 20121212
  Transmission Date: 20140127
  Serious: No
  Sender: FDA-Public Use
  Company Number: 1208USA011231

PATIENT
  Age: 54 Year
  Sex: Female

DRUGS (3)
  1. PEGINTRON [Suspect]
     Indication: HEPATITIS C
     Dates: start: 20120108
  2. REBETOL [Suspect]
     Indication: HEPATITIS C
     Dates: start: 20120108
  3. VICTRELIS [Suspect]
     Indication: HEPATITIS C

REACTIONS (12)
  - Scratch [None]
  - Lung disorder [None]
  - Sleep disorder [None]
  - Blister [None]
  - Weight decreased [None]
  - Injection site pain [None]
  - Pain in extremity [None]
  - Vomiting [None]
  - Irritability [None]
  - Alopecia [None]
  - Decreased appetite [None]
  - Fatigue [None]
